FAERS Safety Report 11755013 (Version 2)
Quarter: 2015Q4

REPORT INFORMATION
  Report Type: Report from Study
  Country: GB (occurrence: GB)
  Receive Date: 20151119
  Receipt Date: 20151210
  Transmission Date: 20160304
  Serious: Yes (Other)
  Sender: FDA-Public Use
  Company Number: GB-JNJFOC-20151116892

PATIENT
  Age: 45 Year
  Sex: Male

DRUGS (5)
  1. OLYSIO [Suspect]
     Active Substance: SIMEPREVIR
     Indication: HEPATITIS C
     Route: 048
     Dates: start: 20150501, end: 20151022
  2. RILPIVIRINE [Concomitant]
     Active Substance: RILPIVIRINE
     Indication: HIV INFECTION
     Route: 065
  3. RIBAVIRIN. [Suspect]
     Active Substance: RIBAVIRIN
     Indication: HEPATITIS C
     Route: 065
     Dates: start: 20150501, end: 20151022
  4. PEGYLATED INTERFERON ALPHA NOS [Suspect]
     Active Substance: PEGINTERFERON ALFA-2A OR PEGINTERFERON ALFA-2B
     Indication: HEPATITIS C
     Route: 065
     Dates: start: 20150501, end: 20151022
  5. KIVEXA [Concomitant]
     Active Substance: ABACAVIR SULFATE\LAMIVUDINE
     Indication: HIV INFECTION
     Route: 065

REACTIONS (1)
  - Viral load increased [Not Recovered/Not Resolved]

NARRATIVE: CASE EVENT DATE: 20151026
